FAERS Safety Report 8150896-5 (Version None)
Quarter: 2012Q1

REPORT INFORMATION
  Report Type: 
  Country: None (occurrence: None)
  Receive Date: 20120220
  Receipt Date: 20120216
  Transmission Date: 20120608
  Serious: Yes (Death)
  Sender: FDA-Public Use
  Company Number: PHHY2012AR013780

PATIENT
  Sex: Male

DRUGS (4)
  1. EXELON [Suspect]
     Indication: MEMORY IMPAIRMENT
     Dates: start: 20110501
  2. EXELON [Suspect]
     Dosage: UNK
  3. RADIATION THERAPY [Concomitant]
  4. EXELON [Suspect]
     Dates: start: 20110501

REACTIONS (2)
  - DEATH [None]
  - VOMITING [None]
